FAERS Safety Report 18409729 (Version 1)
Quarter: 2020Q4

REPORT INFORMATION
  Report Type: Report from Study
  Country: US (occurrence: US)
  Receive Date: 20201021
  Receipt Date: 20201021
  Transmission Date: 20210114
  Serious: Yes (Hospitalization, Other)
  Sender: FDA-Public Use
  Company Number: US-ELI_LILLY_AND_COMPANY-US201508007783

PATIENT
  Sex: Female

DRUGS (4)
  1. HUMALOG [Suspect]
     Active Substance: INSULIN LISPRO
     Indication: PRODUCT USED FOR UNKNOWN INDICATION
     Dosage: UNK, UNKNOWN
     Route: 058
  2. HUMALOG [Suspect]
     Active Substance: INSULIN LISPRO
     Indication: PRODUCT USED FOR UNKNOWN INDICATION
     Dosage: 18 U, QID
     Route: 065
  3. HUMALOG [Suspect]
     Active Substance: INSULIN LISPRO
     Dosage: 120 U, DAILY
     Route: 065
  4. BASAGLAR [Suspect]
     Active Substance: INSULIN GLARGINE
     Indication: PRODUCT USED FOR UNKNOWN INDICATION
     Dosage: UNK UNK, UNKNOWN
     Route: 065

REACTIONS (12)
  - Cerebrovascular accident [Unknown]
  - Intercepted product selection error [Recovered/Resolved]
  - Eye haemorrhage [Not Recovered/Not Resolved]
  - Myocardial infarction [Recovering/Resolving]
  - Osteoarthritis [Unknown]
  - Visual impairment [Not Recovered/Not Resolved]
  - Mobility decreased [Unknown]
  - Breast cancer [Unknown]
  - Renal failure [Recovering/Resolving]
  - Thrombosis [Unknown]
  - Arthropathy [Unknown]
  - Blood glucose increased [Unknown]
